FAERS Safety Report 5086959-0 (Version None)
Quarter: 2006Q3

REPORT INFORMATION
  Report Type: 
  Country: None (occurrence: None)
  Receive Date: 20060818
  Receipt Date: 20060807
  Transmission Date: 20061208
  Serious: Yes (Hospitalization, Other)
  Sender: FDA-Public Use
  Company Number: 2006096954

PATIENT
  Age: 47 Year
  Sex: Male
  Weight: 75.4 kg

DRUGS (12)
  1. DILANTIN [Suspect]
     Indication: CONVULSION
     Dosage: 400 MG
  2. PHENYTOIN [Suspect]
     Indication: CONVULSION
     Dosage: 100 MG, INTRAVENOUS
     Route: 042
     Dates: start: 20060806, end: 20060807
  3. PANTOPRAZOLE SODIUM [Concomitant]
  4. QUETIAPINE [Concomitant]
  5. NICOTINE [Concomitant]
  6. LANTANOPROST [Concomitant]
  7. DIVALPROEX (VALPROIC ACID) [Concomitant]
  8. ALUMINUM HYDROXIDE [Concomitant]
  9. FOLIC ACID [Concomitant]
  10. THIAMINE [Concomitant]
  11. LORAZEPAM [Concomitant]
  12. DIAZEPAM [Concomitant]

REACTIONS (4)
  - ALCOHOL DETOXIFICATION [None]
  - ILL-DEFINED DISORDER [None]
  - INJECTION SITE REACTION [None]
  - PURPLE GLOVE SYNDROME [None]
